FAERS Safety Report 7029731-4 (Version None)
Quarter: 2010Q4

REPORT INFORMATION
  Report Type: 
  Country: None (occurrence: None)
  Receive Date: 20101005
  Receipt Date: 20101005
  Transmission Date: 20110411
  Serious: Yes (Other)
  Sender: FDA-Public Use
  Company Number: None

PATIENT
  Age: 60 Year
  Sex: Female
  Weight: 77.1115 kg

DRUGS (1)
  1. OXYCONTIN [Suspect]
     Indication: PAIN
     Dosage: 20MG TID PO
     Route: 048

REACTIONS (9)
  - DEHYDRATION [None]
  - DIARRHOEA [None]
  - GAIT DISTURBANCE [None]
  - MALAISE [None]
  - MUSCLE SPASMS [None]
  - PRODUCT FORMULATION ISSUE [None]
  - QUALITY OF LIFE DECREASED [None]
  - VERTIGO [None]
  - VOMITING [None]
